FAERS Safety Report 13973653 (Version 3)
Quarter: 2017Q4

REPORT INFORMATION
  Report Type: Spontaneous
  Country: US (occurrence: US)
  Receive Date: 20170915
  Receipt Date: 20171221
  Transmission Date: 20180321
  Serious: Yes (Life-Threatening, Disabling, Other)
  Sender: FDA-Public Use
  Company Number: PHEH2017US028597

PATIENT
  Sex: Female
  Weight: 68.3 kg

DRUGS (2)
  1. TRILEPTAL [Suspect]
     Active Substance: OXCARBAZEPINE
     Dosage: 600 MG, QD
     Route: 048
     Dates: start: 20170518
  2. TRILEPTAL [Suspect]
     Active Substance: OXCARBAZEPINE
     Indication: TOXICITY TO VARIOUS AGENTS
     Dosage: 75 MG, QD
     Route: 048

REACTIONS (4)
  - Drug prescribing error [Recovered/Resolved with Sequelae]
  - Hypersensitivity [Unknown]
  - Overdose [Recovered/Resolved with Sequelae]
  - Product use in unapproved indication [Unknown]
